FAERS Safety Report 4589422-6 (Version None)
Quarter: 2005Q1

REPORT INFORMATION
  Report Type: 
  Country: None (occurrence: None)
  Receive Date: 20050223
  Receipt Date: 20050217
  Transmission Date: 20050727
  Serious: Yes (Congenital Anomaly, Other)
  Sender: FDA-Public Use
  Company Number: 200511271US

PATIENT
  Sex: Female

DRUGS (5)
  1. LOVENOX [Suspect]
     Indication: ABORTION SPONTANEOUS
     Dates: start: 20041109, end: 20050125
  2. ESTROGEN PATCH [Concomitant]
  3. ASPIRIN [Concomitant]
     Dosage: DOSE: NOT PROVIDED
  4. PRENATAL VITAMINS [Concomitant]
     Dosage: DOSE: NOT PROVIDED
  5. PROGESTERONE [Concomitant]
     Route: 030

REACTIONS (2)
  - DRUG EXPOSURE DURING PREGNANCY [None]
  - SINGLE UMBILICAL ARTERY [None]
